FAERS Safety Report 9226155 (Version 3)
Quarter: 2013Q2

REPORT INFORMATION
  Report Type: Report from Study
  Country: US (occurrence: US)
  Receive Date: 20130411
  Receipt Date: 20130521
  Transmission Date: 20140414
  Serious: Yes (Hospitalization, Other)
  Sender: FDA-Public Use
  Company Number: US-US-EMD SERONO, INC.-7203968

PATIENT
  Age: 43 Year
  Sex: Female
  Weight: 97 kg

DRUGS (1)
  1. REBIF [Suspect]
     Indication: MULTIPLE SCLEROSIS
     Route: 058
     Dates: start: 20110928

REACTIONS (3)
  - Cholelithiasis [Recovering/Resolving]
  - Biliary dilatation [Recovering/Resolving]
  - Injection site reaction [Recovering/Resolving]
